FAERS Safety Report 4771927-6 (Version None)
Quarter: 2005Q3

REPORT INFORMATION
  Report Type: 
  Country: None (occurrence: None)
  Receive Date: 20050916
  Receipt Date: 20050908
  Transmission Date: 20060218
  Serious: Yes (Life-Threatening)
  Sender: FDA-Public Use
  Company Number: GB-GLAXOSMITHKLINE-B0393287A

PATIENT
  Age: 76 Year
  Sex: Female
  Weight: 70 kg

DRUGS (6)
  1. ROPINIROLE [Suspect]
     Indication: PARKINSON'S DISEASE
     Dosage: .25MG THREE TIMES PER DAY
     Route: 048
     Dates: start: 20050813, end: 20050816
  2. SELEGILINE HCL [Concomitant]
     Indication: PARKINSON'S DISEASE
     Dosage: 5MG PER DAY
     Route: 048
  3. SINEMET CR [Concomitant]
     Indication: PARKINSON'S DISEASE
     Dosage: .5TAB PER DAY
     Route: 065
  4. DILTIAZEM [Concomitant]
     Indication: HYPERTENSION
     Dosage: 90MG TWICE PER DAY
     Route: 065
  5. ASPIRIN [Concomitant]
     Indication: PROPHYLAXIS
     Dosage: 75MG PER DAY
     Route: 048
  6. SINEMET [Concomitant]
     Indication: PARKINSON'S DISEASE
     Dosage: 1.5TAB PER DAY

REACTIONS (1)
  - VENTRICULAR FIBRILLATION [None]
